FAERS Safety Report 14160529 (Version 1)
Quarter: 2017Q4

REPORT INFORMATION
  Report Type: Spontaneous
  Country: None (occurrence: ES)
  Receive Date: 20171104
  Receipt Date: 20171104
  Transmission Date: 20180321
  Serious: Yes (Hospitalization, Other)
  Sender: FDA-Public Use
  Company Number: ES-AUROBINDO-AUR-APL-2011-05382

PATIENT

DRUGS (11)
  1. METFORMIN [Suspect]
     Active Substance: METFORMIN HYDROCHLORIDE
     Indication: PRODUCT USED FOR UNKNOWN INDICATION
     Dosage: 850 MG,3 TIMES A DAY,
     Route: 065
  2. ATORVASTATIN [Concomitant]
     Active Substance: ATORVASTATIN
     Dosage: 10 MG,EVERY 24 HOURS,
  3. TELMISARTAN. [Concomitant]
     Active Substance: TELMISARTAN
     Indication: PRODUCT USED FOR UNKNOWN INDICATION
     Dosage: UNK UNK,UNK,
     Route: 065
  4. ATORVASTATIN [Concomitant]
     Active Substance: ATORVASTATIN
     Indication: PRODUCT USED FOR UNKNOWN INDICATION
     Dosage: UNK UNK,UNK,
     Route: 065
  5. TELMISARTAN. [Concomitant]
     Active Substance: TELMISARTAN
     Dosage: 10 MG,EVERY 24 HOURS,
     Route: 065
  6. TORSEMIDE. [Concomitant]
     Active Substance: TORSEMIDE
     Indication: PRODUCT USED FOR UNKNOWN INDICATION
     Dosage: UNK UNK,UNK,
     Route: 065
  7. OMEPRAZOLE. [Concomitant]
     Active Substance: OMEPRAZOLE
     Dosage: 20 MG,EVERY 24 HOURS,
     Route: 065
  8. CARVEDILOL. [Concomitant]
     Active Substance: CARVEDILOL
     Dosage: 6.25 MG,UNK,
     Route: 065
  9. TORSEMIDE. [Concomitant]
     Active Substance: TORSEMIDE
     Dosage: 10 MG,EVERY 24 HOURS,
     Route: 065
  10. CARVEDILOL. [Concomitant]
     Active Substance: CARVEDILOL
     Indication: PRODUCT USED FOR UNKNOWN INDICATION
     Dosage: UNK UNK,UNK,
     Route: 065
  11. OMEPRAZOLE. [Concomitant]
     Active Substance: OMEPRAZOLE
     Indication: PRODUCT USED FOR UNKNOWN INDICATION
     Dosage: UNK UNK,UNK,
     Route: 065

REACTIONS (13)
  - Chronic kidney disease [Recovered/Resolved]
  - Anion gap increased [Recovered/Resolved]
  - Drug level above therapeutic [Unknown]
  - Bundle branch block left [Unknown]
  - Bradyphrenia [Recovered/Resolved]
  - Hyperlactacidaemia [Unknown]
  - Cardiomegaly [Unknown]
  - Fluid overload [Unknown]
  - Diarrhoea haemorrhagic [Unknown]
  - Lactic acidosis [Recovered/Resolved]
  - Diarrhoea [Unknown]
  - Haemodynamic instability [Recovered/Resolved]
  - Cognitive disorder [Recovered/Resolved]
